FAERS Safety Report 18529580 (Version 1)
Quarter: 2020Q4

REPORT INFORMATION
  Report Type: Spontaneous
  Country: US (occurrence: US)
  Receive Date: 20201120
  Receipt Date: 20201120
  Transmission Date: 20210114
  Serious: Yes (Other)
  Sender: FDA-Public Use
  Company Number: US-NOVOPROD-718735

PATIENT
  Sex: Female
  Weight: 64.41 kg

DRUGS (2)
  1. LANTUS [Suspect]
     Active Substance: INSULIN GLARGINE
     Indication: TYPE 1 DIABETES MELLITUS
     Dosage: 12 IU, QD (12 UNITS DAILY)
     Route: 058
  2. NOVOLOG [Suspect]
     Active Substance: INSULIN ASPART
     Indication: TYPE 1 DIABETES MELLITUS
     Dosage: 10 IU, TID
     Route: 058
     Dates: start: 20070926

REACTIONS (6)
  - Respiratory symptom [Recovering/Resolving]
  - Blood glucose increased [Not Recovered/Not Resolved]
  - Hypoacusis [Unknown]
  - Product storage error [Unknown]
  - Suspected product quality issue [Unknown]
  - Influenza like illness [Recovering/Resolving]

NARRATIVE: CASE EVENT DATE: 202003
